FAERS Safety Report 7532217-1 (Version None)
Quarter: 2011Q2

REPORT INFORMATION
  Report Type: 
  Country: None (occurrence: None)
  Receive Date: 20110608
  Receipt Date: 20110603
  Transmission Date: 20111010
  Serious: Yes (Other)
  Sender: FDA-Public Use
  Company Number: SE-PFIZER INC-2011122976

PATIENT
  Age: 85 Year
  Sex: Female

DRUGS (9)
  1. FUROSEMIDE [Concomitant]
     Dosage: 40 MG, UNK
  2. IMOVANE [Concomitant]
     Dosage: 5 MG, UNK
  3. LOSARTAN POTASSIUM AND HYDROCHLOROTHIAZIDE [Concomitant]
     Dosage: 100 MG/25 MG, UNK FREQUENCY
  4. PREDNISOLONE [Suspect]
     Indication: POLYMYALGIA RHEUMATICA
     Dosage: 10 MG, DAILY
     Route: 048
     Dates: start: 20100730
  5. CIPROFLOXACIN HCL [Suspect]
     Indication: VAGINAL INFECTION
     Dosage: 1000 MG, DAILY
     Route: 048
     Dates: start: 20110311
  6. LIPITOR [Concomitant]
     Dosage: 20 MG, UNK
  7. WARAN [Concomitant]
     Dosage: 2.5 MG, UNK
  8. METOPROLOL - SLOW RELEASE [Concomitant]
     Dosage: 100 MG, UNK
  9. ALVEDON [Concomitant]
     Dosage: 500 MG, UNK

REACTIONS (1)
  - TENDON RUPTURE [None]
